FAERS Safety Report 8028512-2 (Version None)
Quarter: 2012Q1

REPORT INFORMATION
  Report Type: 
  Country: None (occurrence: None)
  Receive Date: 20120104
  Receipt Date: 20111221
  Transmission Date: 20120608
  Serious: Yes (Life-Threatening)
  Sender: FDA-Public Use
  Company Number: 2012SP000085

PATIENT
  Age: 60 Year
  Sex: Female

DRUGS (6)
  1. BOCEPREVIR (SCH-503034) [Suspect]
     Indication: HEPATITIS C
     Dates: start: 20111201, end: 20111220
  2. BOCEPREVIR (SCH-503034) [Suspect]
     Indication: ARTHRITIS
     Dates: start: 20111201, end: 20111220
  3. PEG-INTRON [Suspect]
     Indication: HEPATITIS C
     Dosage: 1.5 MCG/KG; QW; SC
     Route: 058
     Dates: start: 20111031, end: 20111220
  4. PEG-INTRON [Suspect]
     Indication: ARTHRITIS
     Dosage: 1.5 MCG/KG; QW; SC
     Route: 058
     Dates: start: 20111031, end: 20111220
  5. RIBAVIRIN [Suspect]
     Indication: HEPATITIS C
     Dates: start: 20111011, end: 20111220
  6. RIBAVIRIN [Suspect]
     Indication: ARTHRITIS
     Dates: start: 20111011, end: 20111220

REACTIONS (1)
  - ASCITES [None]
